FAERS Safety Report 5781463-6 (Version None)
Quarter: 2008Q2

REPORT INFORMATION
  Report Type: 
  Country: None (occurrence: None)
  Receive Date: 20080623
  Receipt Date: 20070511
  Transmission Date: 20081010
  Serious: No
  Sender: FDA-Public Use
  Company Number: US-ASTRAZENECA-2007UW11309

PATIENT
  Age: 61 Year
  Sex: Male
  Weight: 81.6 kg

DRUGS (2)
  1. ENTOCORT EC [Suspect]
     Dosage: SAMPLES
     Route: 048
     Dates: start: 20070510
  2. ACECOL [Concomitant]

REACTIONS (1)
  - FEELING JITTERY [None]
